FAERS Safety Report 21525956 (Version 2)
Quarter: 2023Q1

REPORT INFORMATION
  Report Type: Report from Study
  Country: FR (occurrence: FR)
  Receive Date: 20221031
  Receipt Date: 20230123
  Transmission Date: 20230418
  Serious: Yes (Hospitalization)
  Sender: FDA-Public Use
  Company Number: FR-BAYER-2022P019229

PATIENT
  Age: 83 Year
  Sex: Male

DRUGS (1)
  1. RIVAROXABAN [Suspect]
     Active Substance: RIVAROXABAN
     Indication: Product used for unknown indication
     Dosage: 20 MG
     Route: 048
     Dates: start: 202102

REACTIONS (1)
  - Microcytic anaemia [Not Recovered/Not Resolved]

NARRATIVE: CASE EVENT DATE: 20221019
